FAERS Safety Report 6068282-0 (Version None)
Quarter: 2009Q1

REPORT INFORMATION
  Report Type: 
  Country: None (occurrence: None)
  Receive Date: 20090206
  Receipt Date: 20090203
  Transmission Date: 20090719
  Serious: Yes (Life-Threatening)
  Sender: FDA-Public Use
  Company Number: PHHY2009BR03766

PATIENT
  Age: 26 Year
  Sex: Female
  Weight: 60 kg

DRUGS (3)
  1. TEGRETOL [Suspect]
     Indication: MENTAL DISORDER
     Route: 048
  2. CLONAZEPAM [Concomitant]
     Route: 048
  3. LITHIUM CARBONATE [Concomitant]
     Route: 048

REACTIONS (11)
  - BLOOD PRESSURE DECREASED [None]
  - GASTRIC LAVAGE [None]
  - GLASGOW COMA SCALE ABNORMAL [None]
  - HEART RATE ABNORMAL [None]
  - INTENTIONAL OVERDOSE [None]
  - LETHARGY [None]
  - OLIGURIA [None]
  - SOMNOLENCE [None]
  - SUICIDE ATTEMPT [None]
  - UNRESPONSIVE TO STIMULI [None]
  - VOMITING [None]
